FAERS Safety Report 21348903 (Version 1)
Quarter: 2022Q3

REPORT INFORMATION
  Report Type: Spontaneous
  Country: DE (occurrence: DE)
  Receive Date: 20220919
  Receipt Date: 20220919
  Transmission Date: 20221027
  Serious: Yes (Hospitalization)
  Sender: FDA-Public Use
  Company Number: DE-NOVARTISPH-NVSC2022DE209732

PATIENT
  Age: 55 Year
  Sex: Female
  Weight: 57 kg

DRUGS (1)
  1. CIPROFLOXACIN [Suspect]
     Active Substance: CIPROFLOXACIN
     Indication: Product used for unknown indication
     Dosage: UNK (NACH SCHEMA)
     Route: 048

REACTIONS (5)
  - General physical health deterioration [Unknown]
  - Swollen tongue [Unknown]
  - Pruritus [Unknown]
  - Anaphylactic reaction [Unknown]
  - Dyspnoea [Unknown]
